FAERS Safety Report 8406309-9 (Version None)
Quarter: 2012Q2

REPORT INFORMATION
  Report Type: 
  Country: None (occurrence: None)
  Receive Date: 20120604
  Receipt Date: 20120529
  Transmission Date: 20120825
  Serious: Yes (Other)
  Sender: FDA-Public Use
  Company Number: PHEH2012US010966

PATIENT
  Sex: Female

DRUGS (1)
  1. ZOMETA [Suspect]
     Route: 042

REACTIONS (2)
  - PATHOLOGICAL FRACTURE [None]
  - BONE DISORDER [None]
